FAERS Safety Report 10694782 (Version 1)
Quarter: 2015Q1

REPORT INFORMATION
  Report Type: Spontaneous
  Country: US (occurrence: None)
  Receive Date: 20150105
  Receipt Date: 20150105
  Transmission Date: 20150721
  Serious: Yes (Hospitalization)
  Sender: FDA-Public Use
  Company Number: None

PATIENT
  Age: 84 Year
  Sex: Female
  Weight: 57.61 kg

DRUGS (8)
  1. COSARTIN [Concomitant]
  2. MARIC HEALTH [Concomitant]
  3. OMEPRAZOLE. [Concomitant]
     Active Substance: OMEPRAZOLE
  4. CLARITIN [Concomitant]
     Active Substance: LORATADINE
  5. OXCARBAZEPINE. [Suspect]
     Active Substance: OXCARBAZEPINE
     Indication: BLEPHARITIS
     Dosage: 150 MG, 2 X DAILY, 2 X, PILL
     Dates: start: 201410, end: 201411
  6. XANAX [Concomitant]
     Active Substance: ALPRAZOLAM
  7. ATENOLOL. [Concomitant]
     Active Substance: ATENOLOL
  8. OXCARBAZEPINE. [Suspect]
     Active Substance: OXCARBAZEPINE
     Indication: DYSTONIA
     Dosage: 150 MG, 2 X DAILY, 2 X, PILL
     Dates: start: 201410, end: 201411

REACTIONS (8)
  - Blood potassium decreased [None]
  - Blood sodium decreased [None]
  - Gastroenteritis viral [None]
  - Asthenia [None]
  - Incoherent [None]
  - Vomiting [None]
  - Bedridden [None]
  - Loss of consciousness [None]

NARRATIVE: CASE EVENT DATE: 20141122
